FAERS Safety Report 6027681-3 (Version None)
Quarter: 2009Q1

REPORT INFORMATION
  Report Type: 
  Country: None (occurrence: None)
  Receive Date: 20090105
  Receipt Date: 20081030
  Transmission Date: 20090719
  Serious: No
  Sender: FDA-Public Use
  Company Number: US-TYCO HEALTHCARE/MALLINCKRODT-T200801868

PATIENT

DRUGS (2)
  1. TECHNETIUM TC 99M SESTAMIBI [Suspect]
     Indication: CARDIAC STRESS TEST
     Dosage: UNK, SINGLE
     Route: 042
     Dates: start: 20081030, end: 20081030
  2. ULTRA-TECHNEKOW [Concomitant]
     Indication: CARDIAC STRESS TEST
     Dosage: 30 MCI, SINGLE
     Route: 042
     Dates: start: 20081030, end: 20081030

REACTIONS (1)
  - DRUG INEFFECTIVE [None]
